FAERS Safety Report 9912166 (Version 1)
Quarter: 2014Q1

REPORT INFORMATION
  Report Type: Spontaneous
  Country: US (occurrence: US)
  Receive Date: 20140220
  Receipt Date: 20140220
  Transmission Date: 20141002
  Serious: Yes (Hospitalization)
  Sender: FDA-Public Use
  Company Number: US-BRISTOL-MYERS SQUIBB COMPANY-20225116

PATIENT
  Age: 36 Year
  Sex: Male
  Weight: 124.71 kg

DRUGS (3)
  1. COUMADINE [Suspect]
     Dates: start: 200401
  2. DILANTIN [Interacting]
     Dosage: 1 DF = 300MG IN MORNING, 200MG IN NOON AND 200MG IN NIGHT) THREE TIMES A DAY
     Dates: start: 200401
  3. AMLODIPINE [Concomitant]
     Indication: HYPERTENSION

REACTIONS (2)
  - Coma [Recovered/Resolved]
  - Drug interaction [Recovered/Resolved]
